FAERS Safety Report 21378739 (Version 1)
Quarter: 2022Q3

REPORT INFORMATION
  Report Type: Spontaneous
  Country: TN (occurrence: TN)
  Receive Date: 20220927
  Receipt Date: 20220927
  Transmission Date: 20221026
  Serious: Yes (Other)
  Sender: FDA-Public Use
  Company Number: TN-SUN PHARMACEUTICAL INDUSTRIES LTD-2022R1-355803

PATIENT
  Age: 24 Year
  Sex: Male

DRUGS (4)
  1. METHYLPREDNISOLONE [Suspect]
     Active Substance: METHYLPREDNISOLONE
     Indication: Pulmonary artery aneurysm
     Dosage: 1 GRAM, DAILY
     Route: 065
  2. PREDNISONE [Suspect]
     Active Substance: PREDNISONE
     Indication: Pulmonary artery aneurysm
     Dosage: 1 MILLIGRAM/KILOGRAM, DAILY
     Route: 065
  3. AZATHIOPRINE [Suspect]
     Active Substance: AZATHIOPRINE
     Indication: Pulmonary artery aneurysm
     Dosage: 150 MILLIGRAM, DAILY
     Route: 065
  4. COLCHICINE [Concomitant]
     Active Substance: COLCHICINE
     Indication: Behcet^s syndrome
     Dosage: 1 MILLIGRAM, DAILY
     Route: 065

REACTIONS (1)
  - Disease recurrence [Unknown]
